FAERS Safety Report 11613763 (Version 1)
Quarter: 2015Q4

REPORT INFORMATION
  Report Type: Report from Study
  Country: DE (occurrence: DE)
  Receive Date: 20151008
  Receipt Date: 20151008
  Transmission Date: 20160304
  Serious: Yes (Other)
  Sender: FDA-Public Use
  Company Number: DE-ABBVIE-15K-062-1474344-00

PATIENT
  Age: 40 Year
  Sex: Male

DRUGS (1)
  1. HUMIRA [Suspect]
     Active Substance: ADALIMUMAB
     Indication: PRODUCT USED FOR UNKNOWN INDICATION
     Route: 058
     Dates: start: 20140430

REACTIONS (1)
  - Skin mass [Not Recovered/Not Resolved]

NARRATIVE: CASE EVENT DATE: 20141223
